FAERS Safety Report 4344435-4 (Version None)
Quarter: 2004Q2

REPORT INFORMATION
  Report Type: 
  Country: None (occurrence: None)
  Receive Date: 20040419
  Receipt Date: 20040406
  Transmission Date: 20050107
  Serious: Yes (Hospitalization)
  Sender: FDA-Public Use
  Company Number: FR-JNJFOC-20040401509

PATIENT
  Age: 30 Year
  Sex: Male

DRUGS (2)
  1. RISPERDAL CONSTA [Suspect]
     Indication: PSYCHOTIC DISORDER
     Dosage: 25 MG, 1 IN 14 DAY, INTRA-MUSCULAR
     Route: 030
     Dates: start: 20040406
  2. RISPERDAL [Concomitant]

REACTIONS (3)
  - AGITATION [None]
  - HALLUCINATION, VISUAL [None]
  - TACHYPNOEA [None]
